FAERS Safety Report 8116704-3 (Version None)
Quarter: 2012Q1

REPORT INFORMATION
  Report Type: 
  Country: None (occurrence: None)
  Receive Date: 20120206
  Receipt Date: 20120127
  Transmission Date: 20120608
  Serious: Yes (Hospitalization)
  Sender: FDA-Public Use
  Company Number: US-BAYER-2011-037623

PATIENT
  Sex: Female
  Weight: 105.22 kg

DRUGS (10)
  1. SUCRALFATE [Concomitant]
     Dosage: 1 GM BEFORE MEALS AND AT BEDTIME
     Route: 048
     Dates: start: 20090601
  2. RANITIDINE HCL [Concomitant]
     Dosage: 150 MG, BID
     Route: 048
     Dates: start: 20090601
  3. CODEINE SULFATE [Concomitant]
  4. ALPRAZOLAM [Concomitant]
     Indication: ANXIETY
     Dosage: 0.25 MG, HS
     Route: 048
     Dates: start: 20090601
  5. FLUTICASONE PROPIONATE [Concomitant]
     Dosage: 2 PUFF(S) IN EACH NOSTRIL, HS
     Dates: start: 20090601
  6. YASMIN [Suspect]
     Dosage: UNK
     Dates: start: 20030101, end: 20090901
  7. PROAIR HFA [Concomitant]
     Indication: DYSPNOEA
     Dosage: 2 PUFF(S), QID, AS NEEDED
     Route: 055
     Dates: start: 20090601
  8. RETIN-A [Concomitant]
     Dosage: QD AT HS
     Route: 061
     Dates: start: 20090601
  9. PROMETHAZINE [Concomitant]
  10. PROAIR HFA [Concomitant]
     Indication: WHEEZING

REACTIONS (9)
  - CHOLECYSTITIS CHRONIC [None]
  - ANHEDONIA [None]
  - GALLBLADDER NON-FUNCTIONING [None]
  - GENERAL PHYSICAL HEALTH DETERIORATION [None]
  - ANXIETY [None]
  - CHOLELITHIASIS [None]
  - EMOTIONAL DISTRESS [None]
  - INJURY [None]
  - PAIN [None]
